FAERS Safety Report 7021674-5 (Version None)
Quarter: 2010Q3

REPORT INFORMATION
  Report Type: 
  Country: None (occurrence: None)
  Receive Date: 20100928
  Receipt Date: 20100914
  Transmission Date: 20110219
  Serious: Yes (Hospitalization)
  Sender: FDA-Public Use
  Company Number: IDA-00436

PATIENT
  Age: 35 Year
  Sex: Female

DRUGS (4)
  1. PROPRANOLOL [Suspect]
     Dosage: 20 DF ONCE; ORAL FORMULATION; TABLET
     Route: 048
     Dates: start: 20100418, end: 20100418
  2. STILNOX (ZOLPIDEN) [Concomitant]
  3. ESCITALOPRAM [Concomitant]
  4. TERCIAN (CYAMEMAZINE) [Concomitant]

REACTIONS (3)
  - DRUG LEVEL INCREASED [None]
  - GAIT DISTURBANCE [None]
  - VISUAL IMPAIRMENT [None]
